FAERS Safety Report 22351836 (Version 1)
Quarter: 2023Q2

REPORT INFORMATION
  Report Type: Spontaneous
  Country: US (occurrence: US)
  Receive Date: 20230522
  Receipt Date: 20230522
  Transmission Date: 20230722
  Serious: Yes (Other)
  Sender: FDA-Public Use
  Company Number: US-002147023-NVSC2023US113224

PATIENT
  Sex: Female

DRUGS (1)
  1. IMATINIB [Suspect]
     Active Substance: IMATINIB
     Indication: Chronic myeloid leukaemia
     Dosage: UNK
     Route: 065
     Dates: start: 2020, end: 20230514

REACTIONS (7)
  - Chronic kidney disease [Unknown]
  - Hypersensitivity [Unknown]
  - Swelling [Unknown]
  - Bone pain [Unknown]
  - Weight increased [Unknown]
  - Diarrhoea [Unknown]
  - Rash [Unknown]
